FAERS Safety Report 18768122 (Version 2)
Quarter: 2021Q1

REPORT INFORMATION
  Report Type: Report from Study
  Country: US (occurrence: US)
  Receive Date: 20210121
  Receipt Date: 20210301
  Transmission Date: 20210419
  Serious: Yes (Other)
  Sender: FDA-Public Use
  Company Number: US-HORIZON-2021HZN00476

PATIENT
  Age: 22 Year
  Sex: Male

DRUGS (2)
  1. PROCYSBI [Suspect]
     Active Substance: CYSTEAMINE BITARTRATE
     Indication: CYSTINOSIS
     Dosage: 1125 MG, BID (EVERY 12 HOURS)
     Route: 048
  2. PROCYSBI [Suspect]
     Active Substance: CYSTEAMINE BITARTRATE
     Dosage: UNK
     Route: 048

REACTIONS (8)
  - Impaired gastric emptying [Unknown]
  - Vomiting [Unknown]
  - Eating disorder [Unknown]
  - Transplant rejection [Unknown]
  - Amino acid level increased [Unknown]
  - Illness [Not Recovered/Not Resolved]
  - Dialysis [Unknown]
  - Abdominal pain upper [Unknown]

NARRATIVE: CASE EVENT DATE: 20210118
